FAERS Safety Report 8298999-9 (Version None)
Quarter: 2012Q2

REPORT INFORMATION
  Report Type: 
  Country: None (occurrence: None)
  Receive Date: 20120419
  Receipt Date: 20120409
  Transmission Date: 20120825
  Serious: Yes (Hospitalization)
  Sender: FDA-Public Use
  Company Number: US-BRISTOL-MYERS SQUIBB COMPANY-16241267

PATIENT
  Age: 58 Year
  Sex: Female

DRUGS (2)
  1. CEFEPIME [Suspect]
     Indication: OSTEOMYELITIS
  2. VANCOMYCIN [Suspect]

REACTIONS (3)
  - RENAL IMPAIRMENT [None]
  - MYOCLONUS [None]
  - ENCEPHALOPATHY [None]
